FAERS Safety Report 10011458 (Version 2)
Quarter: 2014Q1

REPORT INFORMATION
  Report Type: Spontaneous
  Country: US (occurrence: None)
  Receive Date: 20140311
  Receipt Date: 20140331
  Transmission Date: 20141002
  Serious: Yes (Death, Hospitalization, Other)
  Sender: FDA-Public Use
  Company Number: 09-AUR-10253

PATIENT
  Age: 40 Year
  Sex: Female

DRUGS (4)
  1. HYDROCHLOROTHIAZIDE [Suspect]
     Indication: PRODUCT USED FOR UNKNOWN INDICATION
  2. RISPERIDONE [Suspect]
     Indication: PRODUCT USED FOR UNKNOWN INDICATION
  3. SERTRALINE [Suspect]
     Indication: PRODUCT USED FOR UNKNOWN INDICATION
  4. GLIBOMET [Suspect]
     Indication: PRODUCT USED FOR UNKNOWN INDICATION

REACTIONS (12)
  - Lactic acidosis [None]
  - Overdose [None]
  - Vomiting [None]
  - Lethargy [None]
  - Haemodialysis [None]
  - Hypotension [None]
  - Metabolic acidosis [None]
  - Azotaemia [None]
  - Diabetic ketoacidosis [None]
  - Drug prescribing error [None]
  - Toxicity to various agents [None]
  - Medication error [None]
